FAERS Safety Report 22068374 (Version 1)
Quarter: 2023Q1

REPORT INFORMATION
  Report Type: Report from Study
  Country: US (occurrence: None)
  Receive Date: 20230307
  Receipt Date: 20230307
  Transmission Date: 20230418
  Serious: Yes (Death, Other)
  Sender: FDA-Public Use
  Company Number: US-ROCHE-3274069

PATIENT
  Age: 52 Year
  Sex: Female
  Weight: 92.35 kg

DRUGS (3)
  1. ATEZOLIZUMAB [Suspect]
     Active Substance: ATEZOLIZUMAB
     Indication: Small cell lung cancer
     Dosage: LAST ADMINISTERED DATE 03/SEP/2020
     Route: 041
     Dates: start: 20200401
  2. CARBOPLATIN [Suspect]
     Active Substance: CARBOPLATIN
     Indication: Small cell lung cancer
     Dosage: LAST ADMINISTERED DATE 15/MAY/2020?ON DAY 1 FOR EVERY 21 DAYS
     Route: 042
     Dates: start: 20200401
  3. ETOPOSIDE [Suspect]
     Active Substance: ETOPOSIDE
     Indication: Small cell lung cancer
     Dosage: LAST ADMINISTERED DATE 15/MAY/2020
     Route: 042
     Dates: start: 20200401

REACTIONS (2)
  - Disease progression [Fatal]
  - Embolism [Unknown]

NARRATIVE: CASE EVENT DATE: 20200413
